FAERS Safety Report 12490200 (Version 1)
Quarter: 2016Q2

REPORT INFORMATION
  Report Type: Spontaneous
  Country: US (occurrence: US)
  Receive Date: 20160622
  Receipt Date: 20160622
  Transmission Date: 20160815
  Serious: No
  Sender: FDA-Public Use
  Company Number: US-IGI LABORATORIES, INC.-1054219

PATIENT
  Sex: Female
  Weight: 77.11 kg

DRUGS (4)
  1. TUMS EX [Suspect]
     Active Substance: CALCIUM CARBONATE
     Route: 065
  2. TUMS [Suspect]
     Active Substance: CALCIUM CARBONATE
     Route: 065
  3. PREVACID [Suspect]
     Active Substance: LANSOPRAZOLE
     Route: 065
  4. ZANTAC [Suspect]
     Active Substance: RANITIDINE HYDROCHLORIDE
     Indication: DYSPEPSIA
     Route: 065

REACTIONS (2)
  - Exposure during pregnancy [Unknown]
  - Drug ineffective [Unknown]
